FAERS Safety Report 4763112-9 (Version None)
Quarter: 2005Q3

REPORT INFORMATION
  Report Type: 
  Country: None (occurrence: None)
  Receive Date: 20050826
  Receipt Date: 20041026
  Transmission Date: 20060218
  Serious: Yes (Hospitalization, Other)
  Sender: FDA-Public Use
  Company Number: USA-2004-0013224

PATIENT
  Age: 20 Year
  Sex: Female
  Weight: 49 kg

DRUGS (9)
  1. OXYCONTIN [Suspect]
     Indication: PAIN
     Dosage: 40 MG TID
     Dates: start: 20010101, end: 20030918
  2. AMBIEN [Concomitant]
  3. LORTAB [Concomitant]
  4. VALIUM [Concomitant]
  5. RITALIN [Concomitant]
  6. NEURONTIN [Concomitant]
  7. BEXTRA [Concomitant]
  8. ULTRAM [Concomitant]
  9. ZYPREXA [Concomitant]

REACTIONS (6)
  - CONFUSIONAL STATE [None]
  - DRUG ABUSER [None]
  - DRUG DEPENDENCE [None]
  - DRUG WITHDRAWAL SYNDROME [None]
  - INSOMNIA [None]
  - MEMORY IMPAIRMENT [None]
